FAERS Safety Report 5202149-2 (Version None)
Quarter: 2007Q1

REPORT INFORMATION
  Report Type: 
  Country: None (occurrence: None)
  Receive Date: 20070109
  Receipt Date: 20070103
  Transmission Date: 20070707
  Serious: Yes (Hospitalization)
  Sender: FDA-Public Use
  Company Number: CA-JNJFOC-20070100790

PATIENT
  Sex: Female
  Weight: 93 kg

DRUGS (1)
  1. REMICADE [Suspect]
     Indication: RHEUMATOID ARTHRITIS
     Dosage: TOTAL OF 36 DOSES ON UNKNOWN DATES.
     Route: 042

REACTIONS (3)
  - DRUG INEFFECTIVE [None]
  - ELECTROLYTE IMBALANCE [None]
  - NASOPHARYNGITIS [None]
